FAERS Safety Report 24594540 (Version 1)
Quarter: 2024Q4

REPORT INFORMATION
  Report Type: Spontaneous
  Country: US (occurrence: US)
  Receive Date: 20241108
  Receipt Date: 20241108
  Transmission Date: 20250114
  Serious: Yes (Death)
  Sender: R-PHARM US LLC
  Company Number: US-R-PHARM US LLC-2024RPM00006

PATIENT
  Age: 53 Year
  Sex: Female

DRUGS (2)
  1. IXEMPRA [Suspect]
     Active Substance: IXABEPILONE
     Indication: Breast cancer metastatic
     Dosage: 60 MG
     Dates: start: 20240205, end: 2024
  2. IXEMPRA [Suspect]
     Active Substance: IXABEPILONE
     Indication: Breast cancer metastatic
     Dosage: 60 MG
     Dates: start: 20240301, end: 2024

REACTIONS (1)
  - Death [Fatal]

NARRATIVE: CASE EVENT DATE: 20240830
